FAERS Safety Report 8031804-4 (Version None)
Quarter: 2012Q1

REPORT INFORMATION
  Report Type: 
  Country: None (occurrence: None)
  Receive Date: 20120109
  Receipt Date: 20120105
  Transmission Date: 20120608
  Serious: Yes (Hospitalization)
  Sender: FDA-Public Use
  Company Number: FR-ROCHE-1028103

PATIENT
  Sex: Male

DRUGS (3)
  1. BACTRIM [Suspect]
     Indication: URINARY TRACT INFECTION
     Route: 048
     Dates: start: 20111215, end: 20111222
  2. ROCEPHIN [Suspect]
     Indication: LUNG DISORDER
     Dates: start: 20111221, end: 20111222
  3. FLUCONAZOLE [Suspect]
     Indication: ORAL CANDIDIASIS
     Route: 048
     Dates: start: 20111215, end: 20111222

REACTIONS (2)
  - CYTOLYTIC HEPATITIS [None]
  - THROMBOCYTOPENIA [None]
